FAERS Safety Report 8499708-0 (Version None)
Quarter: 2012Q3

REPORT INFORMATION
  Report Type: 
  Country: None (occurrence: None)
  Receive Date: 20120710
  Receipt Date: 20120628
  Transmission Date: 20120928
  Serious: Yes (Hospitalization)
  Sender: FDA-Public Use
  Company Number: JP-VERTEX PHARMACEUTICALS INC.-AE-2012-009780

PATIENT
  Age: 55 Year
  Sex: Female

DRUGS (11)
  1. REBETOL [Concomitant]
     Route: 048
     Dates: start: 20120509, end: 20120623
  2. TELAVIC (TELAPREVIR) [Suspect]
     Indication: HEPATITIS C
     Route: 048
     Dates: start: 20120417, end: 20120424
  3. PEG-INTRON [Concomitant]
     Indication: HEPATITIS C
     Route: 058
     Dates: start: 20120417, end: 20120522
  4. TELAVIC (TELAPREVIR) [Suspect]
     Route: 048
     Dates: end: 20120623
  5. CALBLOCK [Concomitant]
     Route: 048
  6. TELAVIC (TELAPREVIR) [Suspect]
     Route: 048
     Dates: start: 20120509, end: 20120529
  7. PEG-INTRON [Concomitant]
     Route: 058
     Dates: start: 20120523
  8. TELAVIC (TELAPREVIR) [Suspect]
     Route: 048
     Dates: start: 20120425, end: 20120508
  9. PEG-INTRON [Concomitant]
     Route: 058
  10. REBETOL [Concomitant]
     Indication: HEPATITIS C
     Route: 048
     Dates: start: 20120417, end: 20120508
  11. TELAVIC (TELAPREVIR) [Suspect]
     Route: 048
     Dates: start: 20120530

REACTIONS (1)
  - HYPOKALAEMIA [None]
